FAERS Safety Report 5033986-5 (Version None)
Quarter: 2006Q2

REPORT INFORMATION
  Report Type: 
  Country: None (occurrence: None)
  Receive Date: 20060626
  Receipt Date: 20060531
  Transmission Date: 20061013
  Serious: Yes (Death)
  Sender: FDA-Public Use
  Company Number: 2006AP02850

PATIENT
  Age: 45 Year
  Sex: Male

DRUGS (3)
  1. SEROQUEL [Suspect]
     Indication: BIPOLAR DISORDER
     Route: 048
  2. VALPROATE SODIUM [Concomitant]
  3. VENLAFAXINE HCL [Concomitant]

REACTIONS (1)
  - DEATH [None]
